FAERS Safety Report 7681874-8 (Version None)
Quarter: 2011Q3

REPORT INFORMATION
  Report Type: 
  Country: None (occurrence: None)
  Receive Date: 20110813
  Receipt Date: 20110801
  Transmission Date: 20111222
  Serious: Yes (Other)
  Sender: FDA-Public Use
  Company Number: US-ELI_LILLY_AND_COMPANY-US201104005421

PATIENT
  Sex: Female

DRUGS (21)
  1. FORTEO [Suspect]
     Dosage: 20 UG, QD
     Route: 065
  2. NEURONTIN [Concomitant]
  3. MULTI-VITAMIN [Concomitant]
     Dosage: 1 DF, QD
  4. FORTEO [Suspect]
     Dosage: 20 UG, QD
     Dates: end: 20110516
  5. FORTEO [Suspect]
     Dosage: 20 UG, QD
  6. WELCHOL [Concomitant]
  7. ASPIRIN [Concomitant]
     Dosage: 81 MG, BID
  8. AMLODIPINE [Concomitant]
  9. LISINOPRIL [Concomitant]
  10. HYDROCODONE [Concomitant]
  11. CELEBREX [Concomitant]
  12. LASIX [Concomitant]
  13. CALCIUM CARBONATE [Concomitant]
     Dosage: 2600 MG, BID
  14. VITAMIN D [Concomitant]
     Dosage: 1000 IU, QD
  15. KLOR-CON [Concomitant]
  16. FOLIC ACID [Concomitant]
  17. VITAMIN B6 [Concomitant]
     Dosage: 100 MG, QD
  18. FORTEO [Suspect]
     Indication: OSTEOPOROSIS
     Dosage: 20 UG, QD
     Dates: end: 20110410
  19. MORPHINE [Concomitant]
     Indication: PAIN
  20. VITAMIN B-12 [Concomitant]
     Dosage: UNK, MONTHLY (1/M)
  21. ASMANEX TWISTHALER [Concomitant]
     Dosage: UNK, QD

REACTIONS (5)
  - RESPIRATORY ARREST [None]
  - GAIT DISTURBANCE [None]
  - DRUG DOSE OMISSION [None]
  - PAIN IN EXTREMITY [None]
  - NEURALGIA [None]
